FAERS Safety Report 6993721-8 (Version None)
Quarter: 2010Q3

REPORT INFORMATION
  Report Type: 
  Country: None (occurrence: None)
  Receive Date: 20100917
  Receipt Date: 20100909
  Transmission Date: 20110219
  Serious: No
  Sender: FDA-Public Use
  Company Number: B0628376A

PATIENT
  Sex: Female
  Weight: 50 kg

DRUGS (8)
  1. RELENZA [Suspect]
     Indication: INFLUENZA
     Dosage: 20MG PER DAY
     Route: 055
     Dates: start: 20100116, end: 20100120
  2. DASEN [Concomitant]
     Dosage: 3IUAX PER DAY
     Route: 048
     Dates: start: 20100727, end: 20100730
  3. UNKNOWN MEDICATION [Concomitant]
     Dosage: 3IUAX PER DAY
     Route: 048
     Dates: start: 20100727, end: 20100730
  4. CEFZON [Concomitant]
     Dosage: 2IUAX PER DAY
     Route: 048
     Dates: start: 20100726, end: 20100726
  5. CEFZON [Concomitant]
     Dosage: 3IUAX PER DAY
     Route: 048
     Dates: start: 20100727, end: 20100730
  6. SELBEX [Concomitant]
     Dosage: 3IUAX PER DAY
     Route: 048
     Dates: start: 20100727, end: 20100730
  7. UNKNOWN DRUG [Concomitant]
     Indication: ANTIPYRESIS
     Dosage: 1.5G PER DAY
     Route: 048
     Dates: start: 20100727, end: 20100729
  8. NELBON [Concomitant]
     Route: 048

REACTIONS (2)
  - DELIVERY [None]
  - DRUG EXPOSURE DURING PREGNANCY [None]
